FAERS Safety Report 6083116-6 (Version None)
Quarter: 2009Q1

REPORT INFORMATION
  Report Type: 
  Country: None (occurrence: None)
  Receive Date: 20090213
  Receipt Date: 20090213
  Transmission Date: 20090719
  Serious: Yes (Other)
  Sender: FDA-Public Use
  Company Number: None

PATIENT
  Sex: Female
  Weight: 79.8331 kg

DRUGS (1)
  1. DILACOR XR [Suspect]
     Dosage: 180 MG 1 DAILY ORAL
     Route: 048
     Dates: start: 20090114, end: 20090117

REACTIONS (3)
  - DIZZINESS [None]
  - DYSSTASIA [None]
  - GAIT DISTURBANCE [None]
